FAERS Safety Report 11140500 (Version 1)
Quarter: 2015Q2

REPORT INFORMATION
  Report Type: Spontaneous
  Country: US (occurrence: US)
  Receive Date: 20150527
  Receipt Date: 20150527
  Transmission Date: 20150821
  Serious: No
  Sender: FDA-Public Use
  Company Number: US-MALLINCKRODT-QSC-2014-0769

PATIENT
  Sex: Male
  Weight: 141.5 kg

DRUGS (8)
  1. H.P. ACTHAR [Suspect]
     Active Substance: CORTICOTROPIN
     Indication: RHEUMATOID ARTHRITIS
     Dosage: UNK
     Dates: start: 2013, end: 2013
  2. PREDNISONE. [Concomitant]
     Active Substance: PREDNISONE
     Dosage: UNK
  3. CALCIUM [Concomitant]
     Active Substance: CALCIUM
     Dosage: UNK
  4. SPRYCEL [Concomitant]
     Active Substance: DASATINIB
     Dosage: UNK
  5. HYDROCODONE [Concomitant]
     Active Substance: HYDROCODONE
     Dosage: UNK
  6. FOLBIC [Concomitant]
     Active Substance: CYANOCOBALAMIN\FOLIC ACID\PYRIDOXINE
     Dosage: UNK
  7. REMICADE [Concomitant]
     Active Substance: INFLIXIMAB
     Dosage: UNK
  8. RITUXAN [Concomitant]
     Active Substance: RITUXIMAB
     Dosage: UNK
     Route: 042

REACTIONS (1)
  - Injection site rash [Recovered/Resolved]

NARRATIVE: CASE EVENT DATE: 2013
